FAERS Safety Report 8842971 (Version 1)
Quarter: 2012Q4

REPORT INFORMATION
  Report Type: 
  Country: US (occurrence: US)
  Receive Date: 20121016
  Receipt Date: 20121016
  Transmission Date: 20130627
  Serious: Yes (Other)
  Sender: FDA-Public Use
  Company Number: US-VERTEX PHARMACEUTICAL INC.-2012-022856

PATIENT
  Age: 38 Year
  Sex: Female
  Weight: 82 kg

DRUGS (8)
  1. INCIVEK [Suspect]
     Indication: HEPATITIS C
     Dosage: 750 mg, tid
     Route: 048
     Dates: start: 20120709, end: 20121005
  2. RIBASPHERE [Suspect]
     Indication: HEPATITIS C
     Dosage: 600 mg in AM, 400 mg in PM
     Route: 048
  3. RIBASPHERE [Suspect]
     Dosage: 200 mg, qd
     Route: 048
     Dates: start: 20120824
  4. RIBASPHERE [Suspect]
     Dosage: 200 mg in AM, 400 mg in PM
     Route: 048
     Dates: start: 201209, end: 20121005
  5. PEGASYS [Suspect]
     Indication: HEPATITIS C
     Dosage: 180 ?g, UNK
     Route: 058
  6. PEGASYS [Suspect]
     Dosage: 130 ?g, UNK
     Route: 058
     Dates: start: 20121004, end: 20121005
  7. HYDROCHLOROTHIAZIDE [Concomitant]
     Indication: HYPERTENSION
     Dosage: 12.5 mg, qd
     Route: 048
  8. LISINOPRIL [Concomitant]
     Indication: HYPERTENSION
     Dosage: 10 mg, qd
     Route: 048

REACTIONS (6)
  - Anaemia [Recovered/Resolved]
  - Depressed mood [Not Recovered/Not Resolved]
  - Rash [Recovered/Resolved]
  - Haemorrhoids [Recovered/Resolved]
  - Nausea [Recovered/Resolved]
  - Pruritus [Recovered/Resolved]
